FAERS Safety Report 7670056-1 (Version None)
Quarter: 2011Q3

REPORT INFORMATION
  Report Type: 
  Country: None (occurrence: None)
  Receive Date: 20110808
  Receipt Date: 20110802
  Transmission Date: 20111222
  Serious: Yes (Death, Life-Threatening, Hospitalization, Other)
  Sender: FDA-Public Use
  Company Number: GB-ASTRAZENECA-2011SE41057

PATIENT
  Age: 70 Year
  Sex: Female
  Weight: 80 kg

DRUGS (7)
  1. ULTIVA [Suspect]
     Indication: ANAESTHESIA
     Route: 042
  2. SUXAMETHONIUM [Suspect]
     Indication: ANAESTHESIA
     Route: 040
  3. HYDROCORTISONE [Concomitant]
     Indication: HYPOPITUITARISM
     Route: 048
  4. PROPOFOL [Suspect]
     Indication: ANAESTHESIA
     Dosage: TOTAL DAILY DOSE OF 100 MG
     Route: 042
     Dates: start: 20050127
  5. ADRENALIN IN OIL INJ [Concomitant]
  6. LEVOTHYROXINE SODIUM [Concomitant]
     Indication: HYPOPITUITARISM
     Route: 048
  7. AMIODARONE [Concomitant]

REACTIONS (11)
  - CARDIAC ARREST [None]
  - HYPOXIA [None]
  - VENTRICULAR FIBRILLATION [None]
  - PERICARDIAL HAEMORRHAGE [None]
  - PERIPHERAL PULSE DECREASED [None]
  - BRADYCARDIA [None]
  - PULSE ABNORMAL [None]
  - PNEUMONIA [None]
  - PULSELESS ELECTRICAL ACTIVITY [None]
  - ACUTE MYOCARDIAL INFARCTION [None]
  - METABOLIC ACIDOSIS [None]
